FAERS Safety Report 7355552-9 (Version None)
Quarter: 2011Q1

REPORT INFORMATION
  Report Type: 
  Country: None (occurrence: None)
  Receive Date: 20110316
  Receipt Date: 20110309
  Transmission Date: 20110831
  Serious: Yes (Hospitalization, Congenital Anomaly)
  Sender: FDA-Public Use
  Company Number: A0918322A

PATIENT
  Sex: Male

DRUGS (3)
  1. PAXIL [Suspect]
     Route: 064
  2. PAROXETINE HYDROCHLORIDE [Suspect]
     Route: 064
  3. MULTIVITAMIN [Concomitant]

REACTIONS (3)
  - CONGENITAL ANOMALY [None]
  - DRUG EXPOSURE DURING PREGNANCY [None]
  - WOLFF-PARKINSON-WHITE SYNDROME [None]
